FAERS Safety Report 8373179-7 (Version None)
Quarter: 2012Q2

REPORT INFORMATION
  Report Type: 
  Country: None (occurrence: None)
  Receive Date: 20120521
  Receipt Date: 20120517
  Transmission Date: 20120825
  Serious: Yes (Death, Hospitalization)
  Sender: FDA-Public Use
  Company Number: CA-ABBOTT-10P-028-0693902-00

PATIENT
  Sex: Female

DRUGS (3)
  1. PREDNISONE [Concomitant]
     Indication: PRODUCT USED FOR UNKNOWN INDICATION
     Dosage: 20MG TWICE A DAY
  2. IMURAN [Concomitant]
     Indication: PRODUCT USED FOR UNKNOWN INDICATION
     Dosage: 125MG DAILY
  3. HUMIRA [Suspect]
     Indication: COLITIS ULCERATIVE
     Dosage: Q2/52, 1 EVERY 2 WEEKS
     Route: 058
     Dates: start: 20100930

REACTIONS (1)
  - PNEUMONIA [None]
